FAERS Safety Report 4491050-8 (Version None)
Quarter: 2004Q4

REPORT INFORMATION
  Report Type: 
  Country: None (occurrence: None)
  Receive Date: 20041027
  Receipt Date: 20041011
  Transmission Date: 20050328
  Serious: Yes (Death)
  Sender: FDA-Public Use
  Company Number: L04-SWE-06630-21

PATIENT
  Age: 44 Year
  Sex: Male

DRUGS (6)
  1. CITALOPRAM [Suspect]
  2. PROPOXYPHENE [Concomitant]
  3. CARISOPRODOL [Concomitant]
  4. MEPROBAMATE [Concomitant]
  5. PROPIOMAZINE [Concomitant]
  6. DIHYDROPORPIOMAZINE [Concomitant]

REACTIONS (3)
  - COMPLETED SUICIDE [None]
  - DRUG TOXICITY [None]
  - METABOLIC DISORDER [None]
